FAERS Safety Report 7825844-5 (Version None)
Quarter: 2011Q4

REPORT INFORMATION
  Report Type: 
  Country: None (occurrence: None)
  Receive Date: 20111019
  Receipt Date: 20111010
  Transmission Date: 20120403
  Serious: Yes (Hospitalization)
  Sender: FDA-Public Use
  Company Number: FR-ASTRAZENECA-2011SE61398

PATIENT
  Sex: Male

DRUGS (11)
  1. CRESTOR [Suspect]
     Route: 048
     Dates: end: 20110826
  2. CORDARONE [Suspect]
     Route: 048
  3. PERINDOPRIL ERBUMINE [Suspect]
     Route: 048
     Dates: start: 20110701, end: 20110826
  4. MARSILID PHOSPHATE TAB [Suspect]
     Route: 048
     Dates: end: 20110902
  5. ASPIRIN [Suspect]
     Route: 048
     Dates: end: 20110901
  6. PERINDOPRIL ERBUMINE [Suspect]
     Route: 048
     Dates: end: 20110701
  7. PREVISCAN [Suspect]
     Route: 048
     Dates: end: 20110831
  8. IMOVANE [Suspect]
     Route: 048
     Dates: end: 20110826
  9. INDAPAMIDE [Suspect]
     Route: 048
     Dates: end: 20110826
  10. NEXIUM [Suspect]
     Route: 048
  11. LORAZEPAM [Suspect]
     Route: 048

REACTIONS (1)
  - RENAL FAILURE ACUTE [None]
